FAERS Safety Report 11540761 (Version 1)
Quarter: 2015Q3

REPORT INFORMATION
  Report Type: Spontaneous
  Country: TR (occurrence: TR)
  Receive Date: 20150923
  Receipt Date: 20150923
  Transmission Date: 20151125
  Serious: Yes (Hospitalization, Other)
  Sender: FDA-Public Use
  Company Number: TR-GLAXOSMITHKLINE-TR2015GSK135475

PATIENT
  Age: 36 Year
  Sex: Male

DRUGS (5)
  1. OLANZAPINE. [Concomitant]
     Active Substance: OLANZAPINE
     Indication: BIPOLAR DISORDER
     Dosage: UNK
  2. LAMOTRIGINE. [Interacting]
     Active Substance: LAMOTRIGINE
     Dosage: UNK
  3. VALPROIC ACID. [Interacting]
     Active Substance: VALPROIC ACID
     Indication: BIPOLAR DISORDER
     Dosage: UNK
  4. LAMOTRIGINE. [Suspect]
     Active Substance: LAMOTRIGINE
     Indication: BIPOLAR DISORDER
     Dosage: UNK
  5. SERTRALINE [Concomitant]
     Active Substance: SERTRALINE HYDROCHLORIDE
     Indication: BIPOLAR DISORDER

REACTIONS (7)
  - Eyelid oedema [Unknown]
  - Eye pain [Unknown]
  - Keratitis [Unknown]
  - Toxic epidermal necrolysis [Recovering/Resolving]
  - Drug interaction [Unknown]
  - Eye pruritus [Unknown]
  - Eye irritation [Unknown]
